FAERS Safety Report 8034638-X (Version None)
Quarter: 2012Q1

REPORT INFORMATION
  Report Type: 
  Country: None (occurrence: None)
  Receive Date: 20120110
  Receipt Date: 20120105
  Transmission Date: 20120608
  Serious: Yes (Hospitalization)
  Sender: FDA-Public Use
  Company Number: US-MERCK-1111USA01291

PATIENT
  Age: 57 Year
  Sex: Female

DRUGS (5)
  1. VITAMINS (UNSPECIFIED) [Concomitant]
     Route: 065
     Dates: start: 19800101
  2. NASONEX [Concomitant]
     Indication: HYPERSENSITIVITY
     Route: 065
     Dates: start: 20060911
  3. FOSAMAX [Suspect]
     Indication: OSTEOPENIA
     Route: 048
     Dates: start: 20010505, end: 20110827
  4. CALCIUM CARBONATE [Concomitant]
     Route: 065
     Dates: start: 19800101
  5. FOSAMAX [Suspect]
     Route: 048

REACTIONS (11)
  - ANXIETY [None]
  - FALL [None]
  - MUSCULOSKELETAL DISORDER [None]
  - GASTROOESOPHAGEAL REFLUX DISEASE [None]
  - HYPERTENSION [None]
  - PAIN [None]
  - INFECTION [None]
  - LOW TURNOVER OSTEOPATHY [None]
  - DEVICE MALFUNCTION [None]
  - FEMUR FRACTURE [None]
  - FOOT FRACTURE [None]
